FAERS Safety Report 15200414 (Version 1)
Quarter: 2018Q3

REPORT INFORMATION
  Report Type: Spontaneous
  Country: CA (occurrence: CA)
  Receive Date: 20180726
  Receipt Date: 20180726
  Transmission Date: 20181010
  Serious: Yes (Hospitalization)
  Sender: FDA-Public Use
  Company Number: CA-HLSUS-2018-CA-001107

PATIENT
  Sex: Male

DRUGS (5)
  1. CLOZAPINE. [Suspect]
     Active Substance: CLOZAPINE
  2. ARIPIPRAZOLE. [Suspect]
     Active Substance: ARIPIPRAZOLE
  3. PALIPERIDONE IM [Suspect]
     Active Substance: PALIPERIDONE
  4. QUETIAPINE. [Suspect]
     Active Substance: QUETIAPINE
  5. LUVOX [Suspect]
     Active Substance: FLUVOXAMINE MALEATE

REACTIONS (12)
  - Weight increased [Recovered/Resolved]
  - Apathy [Unknown]
  - Loss of libido [Unknown]
  - Psychotic disorder [Unknown]
  - Social avoidant behaviour [Unknown]
  - Psychotic disorder [Unknown]
  - Schizophrenia [Unknown]
  - Persecutory delusion [Unknown]
  - Depression [Unknown]
  - Delirium [Unknown]
  - Autism spectrum disorder [Unknown]
  - Suicidal ideation [Unknown]

NARRATIVE: CASE EVENT DATE: 201712
